FAERS Safety Report 6468628-5 (Version None)
Quarter: 2009Q4

REPORT INFORMATION
  Report Type: 
  Country: None (occurrence: None)
  Receive Date: 20091203
  Receipt Date: 20091124
  Transmission Date: 20100525
  Serious: Yes (Other)
  Sender: FDA-Public Use
  Company Number: US-ROCHE-670927

PATIENT
  Age: 96 Year
  Sex: Female
  Weight: 59 kg

DRUGS (12)
  1. BONIVA [Suspect]
     Indication: OSTEOPOROSIS
     Route: 048
     Dates: start: 20040101
  2. BONIVA [Suspect]
     Route: 048
     Dates: start: 20091109
  3. SYNTHROID [Concomitant]
  4. MACROBID [Concomitant]
  5. DETROL [Concomitant]
  6. ZANTAC [Concomitant]
  7. LASIX [Concomitant]
  8. DIGITALIS TAB [Concomitant]
  9. CENTRUM SENIOR [Concomitant]
  10. GLUCOSAMINE [Concomitant]
  11. ALLOPURINOL [Concomitant]
  12. CALCIUM [Concomitant]

REACTIONS (3)
  - JAW DISORDER [None]
  - TOOTH ABSCESS [None]
  - TOOTH FRACTURE [None]
